FAERS Safety Report 8135004-9 (Version None)
Quarter: 2012Q1

REPORT INFORMATION
  Report Type: 
  Country: None (occurrence: None)
  Receive Date: 20120214
  Receipt Date: 20120207
  Transmission Date: 20120608
  Serious: No
  Sender: FDA-Public Use
  Company Number: US-PFIZER INC-2012004862

PATIENT
  Sex: Male
  Weight: 67.12 kg

DRUGS (22)
  1. CAMPTOSAR [Suspect]
     Dosage: 310 MG, UNK
     Route: 042
     Dates: start: 20120118
  2. VITAMIN B-12 [Concomitant]
     Dosage: UNK
     Route: 030
  3. ZOFRAN [Concomitant]
     Dosage: 8 MG, UNK
     Route: 042
     Dates: start: 20111221
  4. DEXAMETHASONE [Concomitant]
     Dosage: 10 MG, UNK
     Dates: start: 20120104
  5. ATROPINE SULFATE [Concomitant]
     Dosage: 025 MG, UNK
     Route: 042
     Dates: start: 20120104
  6. ATROPINE SULFATE [Concomitant]
     Dosage: 0.25 MG, UNK
     Route: 042
     Dates: start: 20120118
  7. SOLU-MEDROL [Concomitant]
     Dosage: UNK
     Route: 042
  8. CAMPTOSAR [Suspect]
     Dosage: 320 MG, UNK
     Route: 042
     Dates: start: 20111221
  9. ADRUCIL [Concomitant]
     Dosage: 4225 MG, UNK
     Route: 042
     Dates: start: 20111221
  10. ADRUCIL [Concomitant]
     Dosage: 4150 MG, UNK
     Route: 042
     Dates: start: 20120118
  11. ZOFRAN [Concomitant]
     Dosage: 8 MG, UNK
     Route: 042
     Dates: start: 20120104
  12. CAMPTOSAR [Suspect]
     Indication: GASTROINTESTINAL CARCINOMA
     Dosage: UNK
     Route: 042
     Dates: start: 20111216
  13. CAMPTOSAR [Suspect]
     Dosage: 320 MG, UNK
     Route: 042
     Dates: start: 20120104
  14. DEXAMETHASONE [Concomitant]
     Dosage: 10 MG, UNK
     Dates: start: 20120118
  15. ZOFRAN [Concomitant]
     Dosage: 8 MG, UNK
     Route: 042
     Dates: start: 20120118
  16. ADRUCIL [Concomitant]
     Dosage: 4225 MG, UNK
     Route: 042
     Dates: start: 20120104
  17. ZOFRAN [Concomitant]
     Route: 048
  18. ATROPINE SULFATE [Concomitant]
     Dosage: 0.25 MG, UNK
     Route: 042
     Dates: start: 20111221
  19. PREDNISONE [Concomitant]
     Dosage: UNK
     Route: 048
  20. DEXAMETHASONE [Concomitant]
     Dosage: 10 MG, UNK
     Dates: start: 20111221
  21. BENADRYL [Concomitant]
     Route: 042
  22. OXALIPLATIN [Concomitant]
     Dosage: UNK
     Route: 042

REACTIONS (3)
  - PAIN IN JAW [None]
  - MUSCLE TIGHTNESS [None]
  - PARAESTHESIA [None]
